FAERS Safety Report 15208200 (Version 1)
Quarter: 2018Q3

REPORT INFORMATION
  Report Type: Spontaneous
  Country: US (occurrence: US)
  Receive Date: 20180628
  Receipt Date: 20180628
  Transmission Date: 20181010
  Serious: No
  Sender: FDA-Public Use
  Company Number: None

PATIENT
  Age: 36 Year
  Sex: Female
  Weight: 85.5 kg

DRUGS (2)
  1. BUPROPION HYDROCHLORIDE XL [Suspect]
     Active Substance: BUPROPION HYDROCHLORIDE
     Indication: DEPRESSION
     Dosage: ?          QUANTITY:1 TABLET(S);?
     Route: 048
     Dates: start: 20180622, end: 20180622
  2. ONE ?A?DAY WOMEN^S MULIIVITAMIN [Concomitant]

REACTIONS (3)
  - Headache [None]
  - Middle insomnia [None]
  - Blood pressure increased [None]

NARRATIVE: CASE EVENT DATE: 20180622
